FAERS Safety Report 15486687 (Version 1)
Quarter: 2018Q4

REPORT INFORMATION
  Report Type: Report from Study
  Country: JP (occurrence: JP)
  Receive Date: 20181011
  Receipt Date: 20181011
  Transmission Date: 20190205
  Serious: Yes (Hospitalization)
  Sender: FDA-Public Use
  Company Number: JP-TEVA-201802_00001326

PATIENT
  Age: 31 Year
  Sex: Male
  Weight: 53 kg

DRUGS (15)
  1. CLOSTRIDIUM BUTYRICUM [Suspect]
     Active Substance: CLOSTRIDIUM BUTYRICUM SPORES STRAIN M-55
     Indication: CROHN^S DISEASE
     Route: 048
     Dates: start: 20140509
  2. PREDNISOLONE TABLETS 5MG. [Suspect]
     Active Substance: PREDNISOLONE
     Indication: CROHN^S DISEASE
     Route: 048
     Dates: start: 20140411
  3. VEDOLIZUMAB [Suspect]
     Active Substance: VEDOLIZUMAB
     Route: 041
     Dates: start: 20140425
  4. METRONIDAZOLE. [Suspect]
     Active Substance: METRONIDAZOLE
     Route: 048
     Dates: start: 20141002
  5. RABEPRAZOLE SODIUM TABLET 10MG ^TYK^ [Suspect]
     Active Substance: RABEPRAZOLE SODIUM
     Indication: CROHN^S DISEASE
     Route: 048
  6. ACETAMINOPHEN FINE GRANULES 20% (TYK) [Suspect]
     Active Substance: ACETAMINOPHEN
     Indication: CROHN^S DISEASE
     Route: 048
     Dates: start: 20140409
  7. MESALAZINE [Suspect]
     Active Substance: MESALAMINE
     Indication: CROHN^S DISEASE
     Route: 048
  8. PINASIONTABLET 10MG [Suspect]
     Active Substance: EPINASTINE
     Indication: CROHN^S DISEASE
     Route: 048
  9. VEDOLIZUMAB [Suspect]
     Active Substance: VEDOLIZUMAB
     Indication: CROHN^S DISEASE
     Route: 041
     Dates: start: 20140715
  10. TRIAMCINOLONE [Suspect]
     Active Substance: TRIAMCINOLONE
     Indication: CROHN^S DISEASE
     Route: 062
  11. METRONIDAZOLE. [Suspect]
     Active Substance: METRONIDAZOLE
     Indication: CROHN^S DISEASE
     Route: 048
     Dates: start: 20140908, end: 20140925
  12. POLAPREZINC [Suspect]
     Active Substance: POLAPREZINC
     Indication: CROHN^S DISEASE
     Route: 048
  13. ELENTAL [Suspect]
     Active Substance: AMINO ACIDS\CARBOHYDRATES\MINERALS\SOYBEAN OIL\VITAMINS
     Indication: CROHN^S DISEASE
     Route: 050
  14. MONTELUKAST SODIUM. [Suspect]
     Active Substance: MONTELUKAST SODIUM
     Indication: RHINITIS ALLERGIC
     Route: 048
  15. BIFIDOBACTERIUM BIFIDUM, STREPTOCOCCUS FAECALIS, LACTOBACILLUS ACIDOPH [Suspect]
     Active Substance: BIFIDOBACTERIUM BIFIDUM\ENTEROCOCCUS FAECALIS\LACTOBACILLUS ACIDOPHILUS
     Indication: CROHN^S DISEASE
     Route: 048
     Dates: start: 20140509

REACTIONS (1)
  - Crohn^s disease [Recovered/Resolved]

NARRATIVE: CASE EVENT DATE: 20140925
